FAERS Safety Report 8159336-3 (Version None)
Quarter: 2012Q1

REPORT INFORMATION
  Report Type: 
  Country: None (occurrence: None)
  Receive Date: 20120223
  Receipt Date: 20120215
  Transmission Date: 20120608
  Serious: Yes (Hospitalization)
  Sender: FDA-Public Use
  Company Number: CA-UCBSA-045970

PATIENT
  Age: 64 Year
  Sex: Male
  Weight: 68.2 kg

DRUGS (24)
  1. CELEBREX [Concomitant]
     Route: 048
     Dates: start: 20111201
  2. CELEBREX [Concomitant]
     Dosage: 200 MG QD,PRN
     Route: 048
     Dates: start: 20111002, end: 20111111
  3. GARLIC [Concomitant]
     Indication: MEDICAL DIET
     Dosage: DOSE PER INTAKE: 3 TAB
     Route: 048
     Dates: start: 20050101
  4. ASCORBIC ACID [Concomitant]
     Indication: MEDICAL DIET
     Route: 048
     Dates: start: 20110117
  5. EMTEC-30 [Concomitant]
     Dosage: 1 TAB QD,PRN
     Route: 048
     Dates: start: 20111002, end: 20111007
  6. TWIN RIX [Concomitant]
     Indication: IMMUNISATION
     Dosage: 1 ML ONCE
     Dates: start: 20111004, end: 20111004
  7. CERTOLIZUMAB PEGOL [Suspect]
     Dosage: NO OF DOSES RECEIVED:3
     Route: 058
     Dates: start: 20110831, end: 20110927
  8. FOLIC ACID [Concomitant]
     Indication: ADVERSE DRUG REACTION
     Dosage: 5MG WEEKLY
     Route: 048
     Dates: start: 20100118
  9. EMTEC-30 [Concomitant]
     Indication: ARTHRALGIA
     Dosage: DOS EPER INTAKE:1 TAB
     Route: 048
     Dates: start: 20110815, end: 20110915
  10. CERTOLIZUMAB PEGOL [Suspect]
     Indication: RHEUMATOID ARTHRITIS
     Dosage: NO OF DOSES RECEIVED:1
     Route: 058
     Dates: start: 20111012, end: 20111130
  11. CRESTOR [Concomitant]
     Indication: HYPERLIPIDAEMIA
     Route: 048
     Dates: start: 20070101
  12. LINSEED OIL [Concomitant]
     Indication: MEDICAL DIET
     Route: 048
     Dates: start: 20060101
  13. MULTI-VITAMINS [Concomitant]
     Indication: MEDICAL DIET
     Dosage: DOSE PER INTAKE: 1 TAB
     Route: 048
     Dates: start: 20040101
  14. GLUCOSAMINE [Concomitant]
     Indication: MEDICAL DIET
     Route: 048
     Dates: start: 20040101
  15. SYNTHROID [Concomitant]
     Indication: HYPOTHYROIDISM
     Route: 048
     Dates: start: 20080101, end: 20111119
  16. ASAPHEN [Concomitant]
     Indication: PROPHYLAXIS
     Route: 048
     Dates: start: 20000101
  17. VITAMIN E [Concomitant]
     Indication: MEDICAL DIET
     Route: 048
     Dates: start: 20000101
  18. TRAMADOL HCL [Concomitant]
     Indication: ARTHRALGIA
     Dosage: 200 MG QD,PRN
     Dates: start: 20111014
  19. ATACAND [Concomitant]
     Indication: HYPERTENSION
     Dosage: 32/25; DOSE PER INTAKE: 1 TAB
     Route: 048
     Dates: start: 20110201
  20. CELEBREX [Concomitant]
     Indication: RHEUMATOID ARTHRITIS
     Route: 048
     Dates: start: 20110715, end: 20110915
  21. CELEBREX [Concomitant]
     Route: 048
     Dates: start: 20111112, end: 20111101
  22. METHOTREXATE [Concomitant]
     Indication: RHEUMATOID ARTHRITIS
     Dosage: 25MG QS
     Route: 058
     Dates: start: 20110530
  23. METAMUCIL-2 [Concomitant]
     Indication: CONSTIPATION
     Dosage: DOSE PER INTAKE:2 TAB
     Route: 048
     Dates: start: 20080101
  24. ACETAMINOPHEN [Concomitant]
     Indication: ARTHRALGIA
     Dosage: 650 MG QD,PRN
     Dates: start: 20111002

REACTIONS (1)
  - BACTERIAL INFECTION [None]
